FAERS Safety Report 5168900-5 (Version None)
Quarter: 2006Q4

REPORT INFORMATION
  Report Type: 
  Country: None (occurrence: None)
  Receive Date: 20061206
  Receipt Date: 20061206
  Transmission Date: 20070319
  Serious: Yes (Hospitalization)
  Sender: FDA-Public Use
  Company Number: None

PATIENT
  Age: 76 Year
  Sex: Female

DRUGS (1)
  1. LEMON LIME PHOSPHOSODA [Suspect]
     Indication: COLONOSCOPY
     Dosage: 45 ML; X1; PO
     Route: 048
     Dates: start: 20051009

REACTIONS (4)
  - MALAISE [None]
  - PHARMACEUTICAL PRODUCT COMPLAINT [None]
  - RENAL DISORDER [None]
  - RENAL FAILURE [None]
